FAERS Safety Report 23153447 (Version 3)
Quarter: 2023Q4

REPORT INFORMATION
  Report Type: Spontaneous
  Country: US (occurrence: US)
  Receive Date: 20231107
  Receipt Date: 20231222
  Transmission Date: 20240110
  Serious: Yes (Hospitalization, Other)
  Sender: FDA-Public Use
  Company Number: US-PFM-2023-02646

PATIENT
  Age: 0 Year
  Sex: Male
  Weight: 5.519 kg

DRUGS (1)
  1. HEMANGEOL [Suspect]
     Active Substance: PROPRANOLOL HYDROCHLORIDE
     Indication: Haemangioma
     Dosage: 2 ML, BID (2/DAY)
     Route: 048
     Dates: start: 20230301

REACTIONS (5)
  - Respiratory syncytial virus infection [Unknown]
  - Bronchiolitis [Unknown]
  - Illness [Unknown]
  - Pyrexia [Unknown]
  - Wheezing [Recovered/Resolved]

NARRATIVE: CASE EVENT DATE: 20230401
